FAERS Safety Report 9463124 (Version 1)
Quarter: 2013Q3

REPORT INFORMATION
  Report Type: Spontaneous
  Country: US (occurrence: US)
  Receive Date: 20130816
  Receipt Date: 20130816
  Transmission Date: 20140515
  Serious: Yes (Hospitalization)
  Sender: FDA-Public Use
  Company Number: US-B.I. PHARMACEUTICALS,INC./RIDGEFIELD-2013-BI-24910BP

PATIENT
  Age: 61 Year
  Sex: Female

DRUGS (7)
  1. MICARDIS HCT TABLETS [Suspect]
     Indication: HYPERTENSION
     Dosage: STRENGTH: 80 MG / 25 MG; DAILY DOSE: 80 MG / 25 MG
     Route: 048
     Dates: start: 2010
  2. HUMALOG [Concomitant]
     Route: 048
  3. METFORMIN [Concomitant]
     Indication: DIABETES MELLITUS
     Dosage: (TABLET)
     Route: 048
  4. LIPITOR [Concomitant]
     Indication: BLOOD CHOLESTEROL INCREASED
     Dosage: 80 MG
     Route: 048
  5. GLUCOTROL [Concomitant]
     Indication: DIABETES MELLITUS
     Route: 048
  6. ASPIRIN [Concomitant]
     Indication: CEREBROVASCULAR ACCIDENT PROPHYLAXIS
     Dosage: 81 MG
  7. PLAVIX [Concomitant]
     Dosage: 75 MG
     Route: 048

REACTIONS (3)
  - Myocardial infarction [Recovered/Resolved]
  - Heart rate abnormal [Not Recovered/Not Resolved]
  - Arterial occlusive disease [Unknown]
